FAERS Safety Report 22122936 (Version 4)
Quarter: 2024Q4

REPORT INFORMATION
  Report Type: Spontaneous
  Country: BR (occurrence: BR)
  Receive Date: 20230322
  Receipt Date: 20241009
  Transmission Date: 20250115
  Serious: Yes (Hospitalization, Other)
  Sender: CELLTRION
  Company Number: BR-CELLTRION INC.-2023BR005909

PATIENT

DRUGS (9)
  1. INFLIXIMAB [Suspect]
     Active Substance: INFLIXIMAB
     Indication: Colitis
     Dosage: 5 AMPOULES (ATTACK DOSE)
     Route: 042
     Dates: start: 20230307
  2. INFLIXIMAB [Suspect]
     Active Substance: INFLIXIMAB
     Indication: Colitis ulcerative
     Dosage: 8 VIALS OF 100 MG EACH (800 MG TOTAL) EVERY 8 WEEKS
     Route: 042
     Dates: start: 202407
  3. INFLIXIMAB [Suspect]
     Active Substance: INFLIXIMAB
     Dosage: 8 VIALS OF 100 MG EACH (800 MG TOTAL) EVERY 8 WEEKS
     Route: 042
     Dates: start: 20240916
  4. SIMVASTATIN [Concomitant]
     Active Substance: SIMVASTATIN
     Indication: Hypercholesterolaemia
     Dosage: 1 PILL A DAY (START: 4 YEARS AGO)
     Route: 048
     Dates: end: 2024
  5. CITALOPRAM [Concomitant]
     Active Substance: CITALOPRAM
     Indication: Depression
     Dosage: 1 PILL A DAY (START: 1 YEAR AGO)
     Route: 048
  6. AZATHIOPRINE [Concomitant]
     Active Substance: AZATHIOPRINE
     Indication: Colitis
     Dosage: 2 PILLS A DAY
     Route: 048
     Dates: start: 202301
  7. MESALAMINE [Concomitant]
     Active Substance: MESALAMINE
     Indication: Colitis
     Dosage: 4 PILLS A DAY (START: 15 YEARS AGO)
     Route: 048
  8. TOPIRAMATE [Concomitant]
     Active Substance: TOPIRAMATE
     Indication: Migraine
     Dosage: 1 TABLET DAILY
     Route: 048
     Dates: start: 202405
  9. DESVENLAFAXINE [Concomitant]
     Active Substance: DESVENLAFAXINE
     Indication: Depression
     Dosage: 1 TABLET DAILY
     Route: 048
     Dates: start: 202408

REACTIONS (8)
  - Colitis [Unknown]
  - Haemorrhage [Recovering/Resolving]
  - Influenza [Unknown]
  - Fatigue [Recovered/Resolved]
  - Weight decreased [Unknown]
  - Intentional dose omission [Unknown]
  - Therapeutic response shortened [Recovering/Resolving]
  - Expired product administered [Unknown]

NARRATIVE: CASE EVENT DATE: 20230309
